FAERS Safety Report 7637988-1 (Version None)
Quarter: 2011Q3

REPORT INFORMATION
  Report Type: 
  Country: None (occurrence: None)
  Receive Date: 20110720
  Receipt Date: 20110711
  Transmission Date: 20111222
  Serious: Yes (Other)
  Sender: FDA-Public Use
  Company Number: 2011AT000187

PATIENT
  Age: 5 Year
  Sex: Male

DRUGS (3)
  1. TESTOSTERONE [Suspect]
  2. ESTRADIOL [Suspect]
  3. ESTRONE [Suspect]

REACTIONS (9)
  - ACCIDENTAL EXPOSURE [None]
  - HORMONE LEVEL ABNORMAL [None]
  - BLOOD ALKALINE PHOSPHATASE INCREASED [None]
  - GYNAECOMASTIA [None]
  - GROWTH ACCELERATED [None]
  - GENDER IDENTITY DISORDER [None]
  - PRECOCIOUS PUBERTY [None]
  - OESTRADIOL INCREASED [None]
  - OESTRONE INCREASED [None]
